FAERS Safety Report 7919225-3 (Version None)
Quarter: 2011Q4

REPORT INFORMATION
  Report Type: 
  Country: None (occurrence: None)
  Receive Date: 20111117
  Receipt Date: 20111106
  Transmission Date: 20120403
  Serious: Yes (Other)
  Sender: FDA-Public Use
  Company Number: US-SHIRE-ALL1-2011-04321

PATIENT
  Age: 22 Year

DRUGS (2)
  1. ADDERALL XR 10 [Suspect]
     Indication: PRODUCT USED FOR UNKNOWN INDICATION
     Dosage: UNK, UNKNOWN(40 MG UNKNOWN MG  CAPSULES TO EQUAL 40 MG, UNKNOWN FREQUENCY, DAILY)
     Route: 048
  2. ADDERALL 5 [Suspect]
     Indication: PRODUCT USED FOR UNKNOWN INDICATION
     Dosage: UNK, UNKNOWN
     Route: 048

REACTIONS (6)
  - OVERDOSE [None]
  - FRONTOTEMPORAL DEMENTIA [None]
  - MALAISE [None]
  - PAIN [None]
  - EDUCATIONAL PROBLEM [None]
  - SOCIAL PROBLEM [None]
